FAERS Safety Report 9132705 (Version 1)
Quarter: 2013Q1

REPORT INFORMATION
  Report Type: Spontaneous
  Country: US (occurrence: US)
  Receive Date: 20130128
  Receipt Date: 20130128
  Transmission Date: 20140127
  Serious: No
  Sender: FDA-Public Use
  Company Number: US-009507513-1301USA009239

PATIENT
  Sex: Female

DRUGS (3)
  1. JANUMET [Suspect]
     Route: 048
  2. BYETTA [Suspect]
  3. AMARYL [Suspect]

REACTIONS (1)
  - Skin ulcer [Unknown]
